FAERS Safety Report 12333290 (Version 1)
Quarter: 2016Q2

REPORT INFORMATION
  Report Type: Spontaneous
  Country: US (occurrence: US)
  Receive Date: 20160504
  Receipt Date: 20160504
  Transmission Date: 20160815
  Serious: No
  Sender: FDA-Public Use
  Company Number: US-ROCHE-ITM201502IM009866

PATIENT
  Age: 76 Year
  Sex: Male
  Weight: 58.57 kg

DRUGS (4)
  1. ESBRIET [Suspect]
     Active Substance: PIRFENIDONE
     Route: 048
     Dates: start: 20141226, end: 20150122
  2. ESBRIET [Suspect]
     Active Substance: PIRFENIDONE
     Indication: IDIOPATHIC PULMONARY FIBROSIS
     Dosage: 801 MG
     Route: 048
     Dates: start: 20141216
  3. ESBRIET [Suspect]
     Active Substance: PIRFENIDONE
     Dosage: FOR 2 WEEKS
     Route: 048
     Dates: start: 20150125
  4. ESBRIET [Suspect]
     Active Substance: PIRFENIDONE
     Route: 048
     Dates: start: 20150402, end: 20150411

REACTIONS (10)
  - Abdominal distension [Not Recovered/Not Resolved]
  - Weight decreased [Unknown]
  - Decreased appetite [Recovering/Resolving]
  - Gastrointestinal disorder [Unknown]
  - Constipation [Not Recovered/Not Resolved]
  - Dizziness [Unknown]
  - Somnolence [Recovering/Resolving]
  - Nausea [Recovering/Resolving]
  - Abdominal discomfort [Unknown]
  - Gastric disorder [Unknown]

NARRATIVE: CASE EVENT DATE: 20141224
